FAERS Safety Report 8955962 (Version 2)
Quarter: 2013Q1

REPORT INFORMATION
  Report Type: Spontaneous
  Country: HR (occurrence: HR)
  Receive Date: 20121210
  Receipt Date: 20130225
  Transmission Date: 20140127
  Serious: Yes (Other)
  Sender: FDA-Public Use
  Company Number: HR-ELI_LILLY_AND_COMPANY-HR201211008748

PATIENT
  Sex: Female

DRUGS (1)
  1. ZYPADHERA [Suspect]
     Indication: SCHIZOPHRENIA
     Dosage: 210 MG, UNKNOWN
     Route: 030
     Dates: start: 20121123

REACTIONS (2)
  - Syncope [Recovered/Resolved]
  - Blood pressure decreased [Recovered/Resolved]
